FAERS Safety Report 25968379 (Version 1)
Quarter: 2025Q4

REPORT INFORMATION
  Report Type: Spontaneous
  Country: CN (occurrence: CN)
  Receive Date: 20251028
  Receipt Date: 20251028
  Transmission Date: 20260117
  Serious: Yes (Other)
  Sender: RANBAXY
  Company Number: CN-SUN PHARMACEUTICAL INDUSTRIES LTD-2025R1-533571

PATIENT
  Age: 57 Year
  Sex: Male

DRUGS (3)
  1. CAPECITABINE [Suspect]
     Active Substance: CAPECITABINE
     Indication: Cholangiocarcinoma
     Dosage: UNK (FOR 2 CYCLES)
     Route: 065
     Dates: start: 20240418, end: 20240531
  2. OXALIPLATIN [Suspect]
     Active Substance: OXALIPLATIN
     Indication: Cholangiocarcinoma
     Dosage: UNK (230 MG)
     Route: 065
     Dates: start: 20240418, end: 20240531
  3. CADONILIMAB [Suspect]
     Active Substance: CADONILIMAB
     Indication: Cholangiocarcinoma
     Dosage: UNK (500 MG)
     Route: 065
     Dates: start: 20240418, end: 20240531

REACTIONS (2)
  - Skin reaction [Recovered/Resolved]
  - Disease progression [Unknown]
